FAERS Safety Report 26128001 (Version 1)
Quarter: 2025Q4

REPORT INFORMATION
  Report Type: Spontaneous
  Country: US (occurrence: US)
  Receive Date: 20251206
  Receipt Date: 20251206
  Transmission Date: 20260118
  Serious: Yes (Death, Other)
  Sender: AMGEN
  Company Number: US-AMGEN-USASP2025240527

PATIENT

DRUGS (2)
  1. IMLYGIC [Suspect]
     Active Substance: TALIMOGENE LAHERPAREPVEC
     Indication: Melanoma recurrent
     Dosage: UNK (TREATMENT WAS INITIATED WITH A TEST DOSE OF 10^6 PFU/ML)
     Route: 026
  2. IMLYGIC [Suspect]
     Active Substance: TALIMOGENE LAHERPAREPVEC
     Dosage: UNK (AFTER THE INITIAL DOSE, INJECTIONS WERE COMPLETED WITH 10^8 PFU/ML, 0.1 ML PER CM2 OF THE LESIO
     Route: 026

REACTIONS (1)
  - Death [Fatal]
